FAERS Safety Report 6908924-8 (Version None)
Quarter: 2010Q3

REPORT INFORMATION
  Report Type: 
  Country: None (occurrence: None)
  Receive Date: 20100805
  Receipt Date: 20100726
  Transmission Date: 20110219
  Serious: No
  Sender: FDA-Public Use
  Company Number: GB-PFIZER INC-2010068955

PATIENT
  Age: 29 Year
  Sex: Female

DRUGS (1)
  1. GENOTROPIN [Suspect]
     Dosage: 1 MG, 1X/DAY

REACTIONS (1)
  - INSULIN-LIKE GROWTH FACTOR DECREASED [None]
